FAERS Safety Report 7170339-8 (Version None)
Quarter: 2010Q4

REPORT INFORMATION
  Report Type: 
  Country: None (occurrence: None)
  Receive Date: 20101123
  Receipt Date: 20100923
  Transmission Date: 20110411
  Serious: No
  Sender: FDA-Public Use
  Company Number: 019254

PATIENT
  Sex: Male
  Weight: 108.9 kg

DRUGS (6)
  1. CIMZIA [Suspect]
     Indication: CROHN'S DISEASE
     Dosage: (2 VIALS MONTHLY SUBCUTANEOUS)
     Route: 058
     Dates: start: 20091101
  2. CARVEDILOL [Concomitant]
  3. PLAVIX [Concomitant]
  4. FOLIC ACID [Concomitant]
  5. FLOMAX [Concomitant]
  6. LOVASTATIN [Concomitant]

REACTIONS (1)
  - FREQUENT BOWEL MOVEMENTS [None]
